FAERS Safety Report 14560010 (Version 1)
Quarter: 2018Q1

REPORT INFORMATION
  Report Type: Spontaneous
  Country: DE (occurrence: DE)
  Receive Date: 20180221
  Receipt Date: 20180221
  Transmission Date: 20180509
  Serious: Yes (Congenital Anomaly)
  Sender: FDA-Public Use
  Company Number: PHHY2018DE028963

PATIENT
  Age: 1 Day
  Sex: Female

DRUGS (13)
  1. OMEPRAZOL [Concomitant]
     Active Substance: OMEPRAZOLE
     Indication: FOETAL EXPOSURE DURING PREGNANCY
     Dosage: MATERNAL DOSE: 40 MG, QD
     Route: 064
     Dates: start: 20161206
  2. L-THYROXINE [Concomitant]
     Active Substance: LEVOTHYROXINE
     Indication: FOETAL EXPOSURE DURING PREGNANCY
     Dosage: MATERNAL DOSE: 50 UG, QD
     Route: 064
     Dates: start: 20161020, end: 20170721
  3. TEARS AGAIN [Concomitant]
     Indication: FOETAL EXPOSURE DURING PREGNANCY
     Dosage: MATERNAL DOSE: UNK
     Route: 064
  4. ASPIRIN. [Concomitant]
     Active Substance: ASPIRIN
     Dosage: MATERNAL DOSE: 100 MG/D, QD
     Route: 064
     Dates: start: 20170615
  5. PANTOPRAZOL [Suspect]
     Active Substance: PANTOPRAZOLE SODIUM
     Indication: FOETAL EXPOSURE DURING PREGNANCY
     Dosage: MATERNAL DOSE: 80 MG, QD
     Route: 064
  6. FOLSAEURE [Concomitant]
     Active Substance: FOLIC ACID
     Indication: FOETAL EXPOSURE DURING PREGNANCY
     Dosage: MATERNAL DOSE: 4.4 MG, QD
     Route: 064
     Dates: start: 20161021
  7. ASPIRIN. [Concomitant]
     Active Substance: ASPIRIN
     Indication: FOETAL EXPOSURE DURING PREGNANCY
     Dosage: MATERNAL DOSE: 100 MG/D, QD
     Route: 064
     Dates: start: 20161121
  8. FOLSAEURE [Concomitant]
     Active Substance: FOLIC ACID
     Dosage: MATERNAL DOSE: 4.4 MG, QD
     Route: 064
     Dates: start: 20170721
  9. OMEPRAZOL [Concomitant]
     Active Substance: OMEPRAZOLE
     Dosage: MATERNAL DOSE: 40 MG, QD
     Route: 064
     Dates: start: 20161214
  10. PROGESTAN [Concomitant]
     Active Substance: PROGESTERONE
     Dosage: MATERNAL DOSE: 200 MG, QD
     Route: 064
     Dates: start: 20170119
  11. DIMENHYDRINATE. [Concomitant]
     Active Substance: DIMENHYDRINATE
     Indication: FOETAL EXPOSURE DURING PREGNANCY
     Dosage: MATERNAL DOSE: 50 MG, QD
     Route: 064
  12. ONDANSETRON [Concomitant]
     Active Substance: ONDANSETRON
     Indication: FOETAL EXPOSURE DURING PREGNANCY
     Dosage: MATERNAL DOSE: 8 MG/D TAKEN ON THREE OCCASIONS/DAYS
     Route: 064
  13. PROGESTAN [Concomitant]
     Active Substance: PROGESTERONE
     Indication: FOETAL EXPOSURE DURING PREGNANCY
     Dosage: MATERNAL DOSE: 200 MG, QD
     Route: 064
     Dates: start: 20161121

REACTIONS (3)
  - Atrial septal defect [Not Recovered/Not Resolved]
  - Developmental hip dysplasia [Recovered/Resolved]
  - Large for dates baby [Recovering/Resolving]

NARRATIVE: CASE EVENT DATE: 20170721
